FAERS Safety Report 8626961 (Version 4)
Quarter: 2012Q4

REPORT INFORMATION
  Report Type: Report from Study
  Country: GB (occurrence: GB)
  Receive Date: 20120620
  Receipt Date: 20120831
  Transmission Date: 20130627
  Serious: Yes (Congenital Anomaly)
  Sender: FDA-Public Use
  Company Number: GB-GILEAD-2012-0056858

PATIENT
  Sex: Female

DRUGS (4)
  1. TENOFOVIR DISOPROXIL FUMARATE [Suspect]
     Indication: HIV INFECTION
     Dosage: 245 mg, QD
     Route: 064
  2. EPIVIR 3TC [Concomitant]
     Indication: HIV INFECTION
     Dosage: 300 mg, QD
     Route: 064
  3. VIRAMUNE [Concomitant]
     Indication: HIV INFECTION
     Dosage: 400 mg, QD
     Route: 064
  4. FOLATE [Concomitant]
     Indication: PRODUCT USED FOR UNKNOWN INDICATION
     Route: 064

REACTIONS (1)
  - Congenital anomaly [Unknown]
